FAERS Safety Report 8632639 (Version 2)
Quarter: 2013Q2

REPORT INFORMATION
  Report Type: Spontaneous
  Country: ES (occurrence: ES)
  Receive Date: 20120625
  Receipt Date: 20130415
  Transmission Date: 20140414
  Serious: Yes (Hospitalization, Other)
  Sender: FDA-Public Use
  Company Number: ES-ELI_LILLY_AND_COMPANY-ES201206004676

PATIENT
  Age: 70 Year
  Sex: Female

DRUGS (1)
  1. FORSTEO [Suspect]
     Dosage: UNK, UNKNOWN
     Route: 058
     Dates: start: 20110326

REACTIONS (8)
  - Hepatitis C [Unknown]
  - Muscular weakness [Unknown]
  - Cystitis [Unknown]
  - Ascites [Unknown]
  - Incorrect drug administration duration [Unknown]
  - Swelling [Unknown]
  - Weight decreased [Unknown]
  - Weight increased [Unknown]
